FAERS Safety Report 13521146 (Version 1)
Quarter: 2017Q2

REPORT INFORMATION
  Report Type: Spontaneous
  Country: US (occurrence: US)
  Receive Date: 20170505
  Receipt Date: 20170505
  Transmission Date: 20170830
  Serious: Yes (Hospitalization)
  Sender: FDA-Public Use
  Company Number: None

PATIENT
  Age: 52 Year
  Sex: Female

DRUGS (1)
  1. DIAZEPAM. [Suspect]
     Active Substance: DIAZEPAM
     Indication: PAIN

REACTIONS (4)
  - Flushing [None]
  - Oral mucosal blistering [None]
  - Tongue blistering [None]
  - Wrong technique in product usage process [None]

NARRATIVE: CASE EVENT DATE: 20170504
